FAERS Safety Report 12631996 (Version 3)
Quarter: 2016Q3

REPORT INFORMATION
  Report Type: Spontaneous
  Country: US (occurrence: US)
  Receive Date: 20160808
  Receipt Date: 20160823
  Transmission Date: 20161109
  Serious: No
  Sender: FDA-Public Use
  Company Number: US-BEH-2016061616

PATIENT
  Sex: Female
  Weight: 58.97 kg

DRUGS (20)
  1. ZOLPIDEM [Concomitant]
     Active Substance: ZOLPIDEM\ZOLPIDEM TARTRATE
  2. VANCOCIN [Concomitant]
     Active Substance: VANCOMYCIN HYDROCHLORIDE
  3. DIPHENHYDRAMINE. [Concomitant]
     Active Substance: DIPHENHYDRAMINE
  4. DESMOPRESSIN [Concomitant]
     Active Substance: DESMOPRESSIN
  5. METHOCARBAMOL. [Concomitant]
     Active Substance: METHOCARBAMOL
  6. ITRACONAZOLE. [Concomitant]
     Active Substance: ITRACONAZOLE
  7. ATIVAN [Concomitant]
     Active Substance: LORAZEPAM
  8. ONE DAILY MULTIVITAMIN [Concomitant]
  9. HIZENTRA [Suspect]
     Active Substance: HUMAN IMMUNOGLOBULIN G
     Indication: HYPOGAMMAGLOBULINAEMIA
     Route: 058
  10. HIZENTRA [Suspect]
     Active Substance: HUMAN IMMUNOGLOBULIN G
     Dosage: 6 G, QW
     Route: 058
     Dates: start: 20141016
  11. SYNTHROID [Concomitant]
     Active Substance: LEVOTHYROXINE SODIUM
  12. EPIPEN [Concomitant]
     Active Substance: EPINEPHRINE
  13. LIBRAX [Concomitant]
     Active Substance: CHLORDIAZEPOXIDE HYDROCHLORIDE\CLIDINIUM BROMIDE
  14. REMERON [Concomitant]
     Active Substance: MIRTAZAPINE
  15. ALBUTEROL. [Concomitant]
     Active Substance: ALBUTEROL
  16. HIZENTRA [Suspect]
     Active Substance: HUMAN IMMUNOGLOBULIN G
     Indication: IMMUNODEFICIENCY COMMON VARIABLE
     Dosage: UNK
     Route: 058
  17. L-LYSINE [Concomitant]
     Active Substance: LYSINE
  18. CLOTRIMAZOLE. [Concomitant]
     Active Substance: CLOTRIMAZOLE
  19. MUCINEX D [Concomitant]
     Active Substance: GUAIFENESIN\PSEUDOEPHEDRINE HYDROCHLORIDE
  20. NORCO [Concomitant]
     Active Substance: ACETAMINOPHEN\HYDROCODONE BITARTRATE

REACTIONS (2)
  - Bronchitis [Unknown]
  - Sinusitis [Unknown]
